FAERS Safety Report 23050359 (Version 4)
Quarter: 2025Q3

REPORT INFORMATION
  Report Type: Report from Study
  Country: US (occurrence: US)
  Receive Date: 20231010
  Receipt Date: 20250924
  Transmission Date: 20251021
  Serious: Yes (Other)
  Sender: ABBVIE
  Company Number: US-ABBVIE-5380626

PATIENT
  Age: 73 Year
  Sex: Female
  Weight: 103 kg

DRUGS (3)
  1. HUMIRA [Suspect]
     Active Substance: ADALIMUMAB
     Indication: Ankylosing spondylitis
     Dosage: UNKNOWN, FORM STRENGTH: 40 MILLIGRAM
     Route: 058
     Dates: start: 201301, end: 202301
  2. HUMIRA [Suspect]
     Active Substance: ADALIMUMAB
     Dosage: FORM STRENGTH: 40 MILLIGRAM?LAST ADMIN DATE: 2023?FREQUENCY TEXT: UNKNOWN
     Route: 058
     Dates: start: 20230501
  3. HUMIRA [Suspect]
     Active Substance: ADALIMUMAB
     Dosage: FORM STRENGTH: 40 MILLIGRAM
     Route: 058
     Dates: start: 2023

REACTIONS (11)
  - Femur fracture [Recovering/Resolving]
  - Scratch [Unknown]
  - Shoulder operation [Recovered/Resolved]
  - Device physical property issue [Unknown]
  - Shoulder operation [Recovered/Resolved]
  - Shoulder operation [Recovered/Resolved]
  - Shoulder operation [Unknown]
  - Arthralgia [Recovering/Resolving]
  - Fall [Unknown]
  - Joint swelling [Recovering/Resolving]
  - Injury [Unknown]

NARRATIVE: CASE EVENT DATE: 20200601
